FAERS Safety Report 17424612 (Version 1)
Quarter: 2020Q1

REPORT INFORMATION
  Report Type: Spontaneous
  Country: DK (occurrence: DK)
  Receive Date: 20200217
  Receipt Date: 20200217
  Transmission Date: 20200409
  Serious: Yes (Other)
  Sender: FDA-Public Use
  Company Number: NVSC2020DK039852

PATIENT
  Age: 30 Year
  Sex: Female

DRUGS (8)
  1. ULTRACORTENOL [Concomitant]
     Active Substance: PREDNISOLONE
     Indication: EYE INFECTION
     Dosage: UNK
     Route: 050
     Dates: start: 20121017
  2. MILDIN [Concomitant]
     Indication: RHINITIS ALLERGIC
     Dosage: 10 MG
     Route: 048
     Dates: start: 20120906
  3. VOLTABAK [Concomitant]
     Indication: PAIN
     Dosage: 1 MG/ML
     Route: 050
     Dates: start: 20170123, end: 20170207
  4. MAXIDEX [Suspect]
     Active Substance: DEXAMETHASONE
     Indication: EPISCLERITIS
     Dosage: UNK
     Route: 050
     Dates: start: 20120305
  5. TOBRADEX [Concomitant]
     Active Substance: DEXAMETHASONE\TOBRAMYCIN
     Indication: EYE INFECTION VIRAL
     Dosage: UNK
     Route: 050
     Dates: start: 20120906
  6. PROTOPIC [Concomitant]
     Active Substance: TACROLIMUS
     Indication: EYELID INFECTION
     Dosage: UNK
     Route: 050
     Dates: start: 20170123, end: 20170207
  7. OPATANOL [Concomitant]
     Active Substance: OLOPATADINE
     Indication: RHINITIS ALLERGIC
     Dosage: UNK
     Route: 050
     Dates: start: 20120906
  8. OPTIMOL [Concomitant]
     Indication: OCULAR HYPERTENSION
     Dosage: 2 DF, QD
     Route: 050
     Dates: start: 20161110

REACTIONS (1)
  - Cataract [Not Recovered/Not Resolved]

NARRATIVE: CASE EVENT DATE: 20190130
